FAERS Safety Report 6296207-1 (Version None)
Quarter: 2009Q3

REPORT INFORMATION
  Report Type: 
  Country: None (occurrence: None)
  Receive Date: 20090803
  Receipt Date: 20090803
  Transmission Date: 20100115
  Serious: Yes (Hospitalization)
  Sender: FDA-Public Use
  Company Number: None

PATIENT
  Age: 69 Year
  Sex: Female
  Weight: 38.9 kg

DRUGS (10)
  1. ZD6474 (VANDETANIB) [Suspect]
     Indication: GLIOBLASTOMA
     Dosage: 100MG PO QD
     Route: 048
     Dates: start: 20080620, end: 20090726
  2. TEMOZOLOMIDE [Suspect]
     Indication: GLIOBLASTOMA
     Dosage: 150MG/M2 PO QD
     Route: 048
     Dates: start: 20080912, end: 20090720
  3. KEPPRA [Concomitant]
  4. MULTI-VITAMINS [Concomitant]
  5. TYLENOL (CAPLET) [Concomitant]
  6. BENADRYL [Concomitant]
  7. FOSAMAZ [Concomitant]
  8. SARNA TOPICAL [Concomitant]
  9. IMODIUM [Concomitant]
  10. ZOFRAN [Concomitant]

REACTIONS (2)
  - APPENDIX DISORDER [None]
  - INFECTION [None]
